FAERS Safety Report 5122649-3 (Version None)
Quarter: 2006Q4

REPORT INFORMATION
  Report Type: 
  Country: None (occurrence: None)
  Receive Date: 20061004
  Receipt Date: 20060913
  Transmission Date: 20070319
  Serious: Yes (Life-Threatening)
  Sender: FDA-Public Use
  Company Number: 2006-02536

PATIENT
  Age: 70 Year
  Sex: Male
  Weight: 79 kg

DRUGS (3)
  1. VELCADE [Suspect]
     Indication: MULTIPLE MYELOMA
     Dosage: 3.50 MG, INTRAVENOUS
     Route: 042
     Dates: start: 20060801
  2. DEXAMETHASONE TAB [Concomitant]
  3. NEUROMULTIVIT         (PYRIDOXINE HYDROCHLORIDE, CYANOCOBALAMIN, THIAM [Concomitant]

REACTIONS (10)
  - ASTHENIA [None]
  - AUTONOMIC NERVOUS SYSTEM IMBALANCE [None]
  - DIZZINESS [None]
  - ENCEPHALOPATHY [None]
  - ILEUS PARALYTIC [None]
  - LOSS OF CONSCIOUSNESS [None]
  - ORTHOSTATIC HYPOTENSION [None]
  - POLYNEUROPATHY [None]
  - POST PROCEDURAL COMPLICATION [None]
  - VESTIBULAR NEURONITIS [None]
